FAERS Safety Report 8884639 (Version 1)
Quarter: 2012Q4

REPORT INFORMATION
  Report Type: Report from Study
  Country: DE (occurrence: DE)
  Receive Date: 20121102
  Receipt Date: 20121102
  Transmission Date: 20130627
  Serious: Yes (Other)
  Sender: FDA-Public Use
  Company Number: DE-BAXTER-2012BAX021621

PATIENT
  Age: 64 Year
  Sex: Female
  Weight: 163 kg

DRUGS (4)
  1. ENDOXAN 1G [Suspect]
     Indication: NON-HODGKIN^S LYMPHOMA
     Dosage: 900 mg per cycle
     Route: 042
     Dates: start: 20071214
  2. MITOXANTRONE [Suspect]
     Indication: NON-HODGKIN^S LYMPHOMA
     Route: 042
     Dates: start: 20071214
  3. RITUXIMAB [Suspect]
     Indication: NON-HODGKIN^S LYMPHOMA
     Route: 042
     Dates: start: 20071214, end: 20080731
  4. FLUDARABINE [Suspect]
     Indication: NON-HODGKIN^S LYMPHOMA
     Dosage: 120 mg/cycle
     Route: 042
     Dates: start: 20071214

REACTIONS (2)
  - Myelodysplastic syndrome [Recovered/Resolved]
  - Stem cell transplant [None]
